FAERS Safety Report 5446082-X (Version None)
Quarter: 2007Q3

REPORT INFORMATION
  Report Type: 
  Country: None (occurrence: None)
  Receive Date: 20070904
  Receipt Date: 20070824
  Transmission Date: 20080115
  Serious: Yes (Other)
  Sender: FDA-Public Use
  Company Number: CIP07001659

PATIENT
  Age: 53 Year
  Sex: Female

DRUGS (1)
  1. DIDRONEL [Suspect]
     Indication: OSTEOPOROSIS
     Dates: start: 20010101

REACTIONS (3)
  - CONDITION AGGRAVATED [None]
  - OSTEOMYELITIS [None]
  - RESORPTION BONE INCREASED [None]
